FAERS Safety Report 12672853 (Version 1)
Quarter: 2016Q3

REPORT INFORMATION
  Report Type: Spontaneous
  Country: US (occurrence: US)
  Receive Date: 20160822
  Receipt Date: 20160822
  Transmission Date: 20161109
  Serious: No
  Sender: FDA-Public Use
  Company Number: US-JNJFOC-20160804917

PATIENT
  Age: 2 Decade
  Sex: Male

DRUGS (2)
  1. MENS ROGAINE EXTRA STRENGTH [Suspect]
     Active Substance: MINOXIDIL
     Route: 061
  2. MENS ROGAINE EXTRA STRENGTH [Suspect]
     Active Substance: MINOXIDIL
     Indication: ALOPECIA
     Dosage: 1 CAPFUL
     Route: 061
     Dates: start: 2016, end: 20160803

REACTIONS (8)
  - Dermatitis [Not Recovered/Not Resolved]
  - Product use issue [Recovering/Resolving]
  - Dizziness [Not Recovered/Not Resolved]
  - Off label use [Recovering/Resolving]
  - Drug administered at inappropriate site [Recovering/Resolving]
  - Rash [Not Recovered/Not Resolved]
  - Drug administered to patient of inappropriate age [Recovering/Resolving]
  - Headache [Recovering/Resolving]

NARRATIVE: CASE EVENT DATE: 2016
